FAERS Safety Report 10064404 (Version 1)
Quarter: 2014Q2

REPORT INFORMATION
  Report Type: Spontaneous
  Country: BR (occurrence: None)
  Receive Date: 20140404
  Receipt Date: 20140404
  Transmission Date: 20141212
  Serious: Yes (Hospitalization)
  Sender: FDA-Public Use
  Company Number: VAL_03046_2014

PATIENT
  Sex: Female
  Weight: 106 kg

DRUGS (7)
  1. ROCALTROL (ROCALTROL - CALCITRIOL) 0.5 MG (NOT SPECIFIED) [Suspect]
     Indication: MINERAL SUPPLEMENTATION
     Dates: start: 2004, end: 2013
  2. DIACQUA [Concomitant]
  3. APLANCIL [Concomitant]
  4. CARVEDILOL [Concomitant]
  5. CALCIUM [Concomitant]
  6. LIPITOR [Concomitant]
  7. PURAN T4 [Concomitant]

REACTIONS (4)
  - Blood pressure decreased [None]
  - Blood calcium decreased [None]
  - Therapy cessation [None]
  - Intracardiac thrombus [None]
